FAERS Safety Report 5521169-1 (Version None)
Quarter: 2007Q4

REPORT INFORMATION
  Report Type: 
  Country: None (occurrence: None)
  Receive Date: 20071119
  Receipt Date: 20071109
  Transmission Date: 20080405
  Serious: Yes (Hospitalization)
  Sender: FDA-Public Use
  Company Number: FR-ELI_LILLY_AND_COMPANY-FR200711002199

PATIENT
  Sex: Male

DRUGS (2)
  1. ALIMTA [Suspect]
     Indication: PLEURAL MESOTHELIOMA
     Dosage: 940 MG, OTHER
     Route: 042
     Dates: end: 20070330
  2. SOLU-MEDROL [Concomitant]
     Dosage: UNK, UNKNOWN
     Route: 048
     Dates: start: 20070301, end: 20070406

REACTIONS (2)
  - HERPES ZOSTER [None]
  - NEUTROPENIA [None]
